FAERS Safety Report 11258639 (Version 1)
Quarter: 2015Q3

REPORT INFORMATION
  Report Type: Spontaneous
  Country: NL (occurrence: None)
  Receive Date: 20150708
  Receipt Date: 20150708
  Transmission Date: 20151125
  Serious: Yes (Other)
  Sender: FDA-Public Use
  Company Number: DEP_03136_2015

PATIENT
  Age: 62 Year
  Sex: Male

DRUGS (10)
  1. DUSPATAL [Concomitant]
     Active Substance: MEBEVERINE
  2. LANOXIN [Concomitant]
     Active Substance: DIGOXIN
  3. TAMSULOSINE HCL [Concomitant]
     Active Substance: TAMSULOSIN
  4. ACENOCOUMAROL [Concomitant]
     Active Substance: ACENOCOUMAROL
  5. COLEX [Concomitant]
  6. PALEXIA [Suspect]
     Active Substance: TAPENTADOL HYDROCHLORIDE
     Indication: NEURALGIA
     Route: 048
     Dates: start: 20150521, end: 20150623
  7. NEXIUM [Concomitant]
     Active Substance: ESOMEPRAZOLE MAGNESIUM
  8. TEMAZEPAM. [Concomitant]
     Active Substance: TEMAZEPAM
  9. FRAXIPARINE [Concomitant]
     Active Substance: NADROPARIN CALCIUM
  10. VERAPAMIL [Concomitant]
     Active Substance: VERAPAMIL HYDROCHLORIDE

REACTIONS (1)
  - Cardiac failure [None]

NARRATIVE: CASE EVENT DATE: 20150623
